FAERS Safety Report 25033206 (Version 1)
Quarter: 2025Q1

REPORT INFORMATION
  Report Type: Spontaneous
  Country: TN (occurrence: TN)
  Receive Date: 20250303
  Receipt Date: 20250303
  Transmission Date: 20250408
  Serious: Yes (Other)
  Sender: MYLAN
  Company Number: TN-PFIZERINC-GRACE01379135

PATIENT
  Age: 45 Year
  Sex: Male

DRUGS (1)
  1. XANAX [Suspect]
     Active Substance: ALPRAZOLAM
     Indication: Product used for unknown indication

REACTIONS (5)
  - Hallucination [Unknown]
  - Depression [Unknown]
  - Somnolence [Unknown]
  - Lethargy [Unknown]
  - Drug ineffective [Unknown]
